FAERS Safety Report 6660739-4 (Version None)
Quarter: 2010Q1

REPORT INFORMATION
  Report Type: 
  Country: None (occurrence: None)
  Receive Date: 20100326
  Receipt Date: 20100315
  Transmission Date: 20100710
  Serious: Yes (Other)
  Sender: FDA-Public Use
  Company Number: 008880

PATIENT
  Age: 2 Day
  Sex: Female
  Weight: 1.7 kg

DRUGS (1)
  1. PROSTAGLANDIN E1 (PROSTAGLANDIN) [Suspect]
     Indication: HEART DISEASE CONGENITAL
     Dosage: (STARTED AT 0.05UG/KG/MIN AND REDUCED TO 0.025UG/KG/MIN)

REACTIONS (5)
  - FEEDING DISORDER NEONATAL [None]
  - IATROGENIC INJURY [None]
  - NEONATAL RESPIRATORY DISTRESS SYNDROME [None]
  - OBSTRUCTION GASTRIC [None]
  - TACHYCARDIA [None]
